FAERS Safety Report 6286583-8 (Version None)
Quarter: 2009Q3

REPORT INFORMATION
  Report Type: 
  Country: None (occurrence: None)
  Receive Date: 20090728
  Receipt Date: 20090722
  Transmission Date: 20100115
  Serious: Yes (Other)
  Sender: FDA-Public Use
  Company Number: JP-ELI_LILLY_AND_COMPANY-JP200907004980

PATIENT
  Sex: Female

DRUGS (2)
  1. GEMZAR [Suspect]
     Indication: CERVIX CARCINOMA
     Dosage: UNK, WEEKLY (1/W)
     Route: 042
  2. CISPLATIN [Concomitant]
     Indication: CERVIX CARCINOMA
     Dosage: 30 MG/M2, WEEKLY (1/W)
     Route: 042

REACTIONS (2)
  - COLONIC PSEUDO-OBSTRUCTION [None]
  - OFF LABEL USE [None]
